FAERS Safety Report 5445181-6 (Version None)
Quarter: 2007Q3

REPORT INFORMATION
  Report Type: 
  Country: None (occurrence: None)
  Receive Date: 20070906
  Receipt Date: 20070825
  Transmission Date: 20080115
  Serious: Yes (Other)
  Sender: FDA-Public Use
  Company Number: US-PFIZER INC-2007050518

PATIENT
  Sex: Female
  Weight: 86.2 kg

DRUGS (8)
  1. CHANTIX [Suspect]
     Indication: SMOKING CESSATION THERAPY
     Route: 048
  2. WARFARIN SODIUM [Suspect]
     Indication: THROMBOSIS
  3. LIPITOR [Concomitant]
  4. DILTIAZEM [Concomitant]
  5. FOLTX [Concomitant]
  6. DUONEB [Concomitant]
  7. VITAMIN B-12 [Concomitant]
  8. COMBIVENT [Concomitant]

REACTIONS (7)
  - ABDOMINAL PAIN UPPER [None]
  - ANXIETY [None]
  - ASTHMA [None]
  - BLEEDING TIME [None]
  - PAIN [None]
  - RESTLESS LEGS SYNDROME [None]
  - TREMOR [None]
